FAERS Safety Report 23079589 (Version 2)
Quarter: 2024Q2

REPORT INFORMATION
  Report Type: Spontaneous
  Country: US (occurrence: US)
  Receive Date: 20231018
  Receipt Date: 20240617
  Transmission Date: 20240716
  Serious: Yes (Other)
  Sender: FDA-Public Use
  Company Number: US-ABBVIE-5450472

PATIENT
  Age: 82 Year
  Sex: Female

DRUGS (1)
  1. REFRESH OPTIVE MEGA-3 [Suspect]
     Active Substance: CARBOXYMETHYLCELLULOSE SODIUM\GLYCERIN\POLYSORBATE 80
     Indication: Dry eye
     Dosage: GLYCERIN 10MG/ML; POLY 80 5MG/ML; CMC 5MG/ML SOL UNT DOSE?5 TO 7 DROPS A DAY
     Route: 047
     Dates: start: 202308

REACTIONS (3)
  - Cataract [Unknown]
  - Visual impairment [Unknown]
  - Dry eye [Unknown]

NARRATIVE: CASE EVENT DATE: 20231012
